FAERS Safety Report 9980086 (Version 1)
Quarter: 2014Q1

REPORT INFORMATION
  Report Type: Report from Study
  Country: US (occurrence: US)
  Receive Date: 20140307
  Receipt Date: 20140307
  Transmission Date: 20141002
  Serious: Yes (Hospitalization)
  Sender: FDA-Public Use
  Company Number: US-ABBVIE-13P-163-1176252-00

PATIENT
  Age: 44 Year
  Sex: Female

DRUGS (15)
  1. HUMIRA [Suspect]
     Indication: PSORIASIS
     Dates: start: 20130214, end: 20130315
  2. HUMIRA [Suspect]
     Dates: start: 20130713, end: 201311
  3. LEVOTHROID [Concomitant]
     Indication: HYPOTHYROIDISM
  4. PREVACID [Concomitant]
     Indication: GASTRIC DISORDER
  5. PREVACID [Concomitant]
     Indication: PROPHYLAXIS
  6. AMBIEN [Concomitant]
     Indication: INSOMNIA
     Dosage: AT BEDTIME
  7. HYDROCODONE [Concomitant]
     Indication: ABDOMINAL PAIN UPPER
     Dosage: 5/500MG
  8. PROVENTIL [Concomitant]
     Indication: ASTHMA
     Dosage: INHALER
  9. TRIAMTERENE/HCTZ [Concomitant]
     Indication: HYPERTENSION
  10. ATENOLOL [Concomitant]
     Indication: HYPERTENSION
  11. PROMETHAZINE [Concomitant]
     Indication: NAUSEA
  12. ATIVAN [Concomitant]
     Indication: ANXIETY
  13. HYOSCYAMINE [Concomitant]
     Indication: PRODUCT USED FOR UNKNOWN INDICATION
     Dosage: 1.25MG TWO TABLETS UNDER THE TONGUE BEFORE MEALS
  14. CELEXA [Concomitant]
     Indication: DEPRESSION
  15. GABAPENTIN [Concomitant]
     Indication: PAIN

REACTIONS (7)
  - Pneumonia [Recovering/Resolving]
  - Iron deficiency anaemia [Recovered/Resolved]
  - Adverse drug reaction [Unknown]
  - Feeling abnormal [Unknown]
  - Fatigue [Unknown]
  - Malaise [Unknown]
  - Pyrexia [Recovering/Resolving]
